FAERS Safety Report 26152091 (Version 2)
Quarter: 2025Q4

REPORT INFORMATION
  Report Type: Spontaneous
  Country: CA (occurrence: CA)
  Receive Date: 20251214
  Receipt Date: 20251215
  Transmission Date: 20260117
  Serious: Yes (Other)
  Sender: TEVA
  Company Number: CA-TEVA-VS-3401410

PATIENT
  Age: 62 Year
  Sex: Male

DRUGS (26)
  1. MOXIFLOXACIN HYDROCHLORIDE [Suspect]
     Active Substance: MOXIFLOXACIN HYDROCHLORIDE
     Indication: Tuberculous pleurisy
     Route: 065
  2. MOXIFLOXACIN HYDROCHLORIDE [Suspect]
     Active Substance: MOXIFLOXACIN HYDROCHLORIDE
     Indication: Tuberculous pleurisy
     Dosage: DOSE FORM:NOT SPECIFIED
     Route: 065
  3. MOXIFLOXACIN HYDROCHLORIDE [Suspect]
     Active Substance: MOXIFLOXACIN HYDROCHLORIDE
     Indication: Tuberculous pleurisy
     Route: 065
  4. MOXIFLOXACIN HYDROCHLORIDE [Suspect]
     Active Substance: MOXIFLOXACIN HYDROCHLORIDE
     Indication: Tuberculous pleurisy
     Route: 065
  5. MOXIFLOXACIN HYDROCHLORIDE [Suspect]
     Active Substance: MOXIFLOXACIN HYDROCHLORIDE
     Indication: Tuberculous pleurisy
     Route: 065
  6. ISONIAZID [Concomitant]
     Active Substance: ISONIAZID
     Indication: Pulmonary tuberculosis
     Route: 065
  7. LINEZOLID [Interacting]
     Active Substance: LINEZOLID
     Indication: Pulmonary tuberculosis
     Route: 065
  8. LINEZOLID [Interacting]
     Active Substance: LINEZOLID
     Indication: Pulmonary tuberculosis
     Route: 065
  9. LINEZOLID [Interacting]
     Active Substance: LINEZOLID
     Indication: Pulmonary tuberculosis
     Route: 065
  10. LINEZOLID [Interacting]
     Active Substance: LINEZOLID
     Indication: Pulmonary tuberculosis
     Route: 065
  11. LINEZOLID [Interacting]
     Active Substance: LINEZOLID
     Indication: Pulmonary tuberculosis
     Route: 065
  12. WARFARIN [Concomitant]
     Active Substance: WARFARIN
     Indication: Atrial fibrillation
     Route: 065
  13. PRETOMANID [Interacting]
     Active Substance: PRETOMANID
     Indication: Pulmonary tuberculosis
     Route: 065
  14. PRETOMANID [Interacting]
     Active Substance: PRETOMANID
     Indication: Pulmonary tuberculosis
     Route: 065
  15. PRETOMANID [Interacting]
     Active Substance: PRETOMANID
     Indication: Pulmonary tuberculosis
     Route: 065
  16. PRETOMANID [Interacting]
     Active Substance: PRETOMANID
     Indication: Pulmonary tuberculosis
     Route: 065
  17. RIFAMPIN [Interacting]
     Active Substance: RIFAMPIN
     Indication: Pulmonary tuberculosis
     Route: 065
  18. BEDAQUILINE [Interacting]
     Active Substance: BEDAQUILINE
     Indication: Pulmonary tuberculosis
     Route: 065
  19. BEDAQUILINE [Interacting]
     Active Substance: BEDAQUILINE
     Indication: Pulmonary tuberculosis
     Route: 065
  20. BEDAQUILINE [Interacting]
     Active Substance: BEDAQUILINE
     Indication: Pulmonary tuberculosis
     Route: 065
  21. BEDAQUILINE [Interacting]
     Active Substance: BEDAQUILINE
     Indication: Pulmonary tuberculosis
     Route: 065
  22. ETHAMBUTOL [Concomitant]
     Active Substance: ETHAMBUTOL HYDROCHLORIDE
     Indication: Pulmonary tuberculosis
     Route: 065
  23. RIVAROXABAN [Concomitant]
     Active Substance: RIVAROXABAN
     Indication: Atrial fibrillation
     Route: 065
  24. PYRAZINAMIDE [Concomitant]
     Active Substance: PYRAZINAMIDE
     Indication: Pulmonary tuberculosis
     Route: 065
  25. SOFOSBUVIR AND VELPATASVIR [Concomitant]
     Active Substance: SOFOSBUVIR\VELPATASVIR
     Indication: Chronic hepatitis C
     Route: 065
  26. LEVOFLOXACIN [Concomitant]
     Active Substance: LEVOFLOXACIN
     Indication: Tuberculous pleurisy
     Route: 065

REACTIONS (5)
  - Neuropathy peripheral [Unknown]
  - Anaemia [Unknown]
  - Drug interaction [Unknown]
  - Off label use [Unknown]
  - Arthralgia [Unknown]
